FAERS Safety Report 21534489 (Version 2)
Quarter: 2022Q4

REPORT INFORMATION
  Report Type: Report from Study
  Country: AU (occurrence: AU)
  Receive Date: 20221101
  Receipt Date: 20221115
  Transmission Date: 20230113
  Serious: Yes (Life-Threatening, Other)
  Sender: FDA-Public Use
  Company Number: AU-ASTELLAS-2022US038506

PATIENT
  Age: 61 Year
  Sex: Male

DRUGS (3)
  1. TACROLIMUS [Suspect]
     Active Substance: TACROLIMUS
     Indication: Renal transplant
     Route: 048
     Dates: start: 20170504
  2. CELLCEPT [Concomitant]
     Active Substance: MYCOPHENOLATE MOFETIL
     Indication: Immunosuppression
     Dosage: 1000 MG, TOTAL DAILY DOSE
     Route: 065
     Dates: start: 20010101
  3. PREDNISONE [Concomitant]
     Active Substance: PREDNISONE
     Indication: Immunosuppression
     Dosage: 7 MG, TOTAL DAILY DOSE
     Route: 065
     Dates: start: 20170503

REACTIONS (1)
  - Post transplant lymphoproliferative disorder [Not Recovered/Not Resolved]

NARRATIVE: CASE EVENT DATE: 20200801
